FAERS Safety Report 9280950 (Version 4)
Quarter: 2013Q2

REPORT INFORMATION
  Report Type: Spontaneous
  Country: US (occurrence: US)
  Receive Date: 20130509
  Receipt Date: 20130614
  Transmission Date: 20140414
  Serious: Yes (Death, Hospitalization, Other)
  Sender: FDA-Public Use
  Company Number: US-009507513-1305USA003380

PATIENT
  Age: 55 Year
  Sex: Female
  Weight: 115 kg

DRUGS (2)
  1. PEG-INTRON [Suspect]
     Indication: HEPATITIS C
     Dosage: 165 MICROGRAM/WEEKLY, REDIPEN
     Route: 058
     Dates: start: 20130412, end: 20130511
  2. REBETOL [Suspect]
     Indication: HEPATITIS C
     Dosage: UNK
     Route: 048
     Dates: start: 20130412, end: 20130511

REACTIONS (20)
  - Pneumonia [Fatal]
  - Septic shock [Fatal]
  - Hypoglycaemia [Recovered/Resolved]
  - Acute respiratory failure [Unknown]
  - Renal failure acute [Recovered/Resolved]
  - Hepatic encephalopathy [Unknown]
  - Confusional state [Unknown]
  - Malaise [Unknown]
  - Anxiety [Unknown]
  - Chronic obstructive pulmonary disease [Unknown]
  - Anaemia [Unknown]
  - Lipase increased [Unknown]
  - Abdominal pain upper [Unknown]
  - Decreased appetite [Unknown]
  - Eating disorder [Unknown]
  - Hypercapnia [Unknown]
  - Pulmonary oedema [Unknown]
  - Cardiac failure congestive [Unknown]
  - Diabetes mellitus [Unknown]
  - Dehydration [Unknown]
